FAERS Safety Report 7328286-4 (Version None)
Quarter: 2011Q1

REPORT INFORMATION
  Report Type: 
  Country: None (occurrence: None)
  Receive Date: 20110303
  Receipt Date: 20110228
  Transmission Date: 20110831
  Serious: Yes (Hospitalization)
  Sender: FDA-Public Use
  Company Number: US-SANOFI-AVENTIS-2011SA012601

PATIENT
  Age: 73 Year
  Sex: Female

DRUGS (5)
  1. ELITEK [Suspect]
     Indication: LYMPHOMA
     Route: 042
     Dates: start: 20110101, end: 20110101
  2. RITUXAN [Suspect]
     Indication: LYMPHOMA
     Route: 042
     Dates: start: 20110101, end: 20110101
  3. PRAVACHOL [Concomitant]
  4. MIRALAX [Concomitant]
  5. ASA [Concomitant]

REACTIONS (6)
  - FLUSHING [None]
  - INCOHERENT [None]
  - PYREXIA [None]
  - UNRESPONSIVE TO STIMULI [None]
  - HYPERHIDROSIS [None]
  - ADVERSE DRUG REACTION [None]
